FAERS Safety Report 4280291-0 (Version None)
Quarter: 2004Q1

REPORT INFORMATION
  Report Type: 
  Country: None (occurrence: None)
  Receive Date: 20040128
  Receipt Date: 20040126
  Transmission Date: 20041129
  Serious: Yes (Death)
  Sender: FDA-Public Use
  Company Number: US-BRISTOL-MYERS SQUIBB COMPANY-12486205

PATIENT
  Age: 59 Year
  Sex: Male
  Weight: 77 kg

DRUGS (7)
  1. CARBOPLATIN [Suspect]
     Indication: BLADDER CANCER
     Dosage: DAY 1
     Route: 042
     Dates: start: 20030702, end: 20030813
  2. PACLITAXEL [Suspect]
     Indication: BLADDER CANCER
     Dosage: DAY 1
     Route: 042
     Dates: start: 20030702, end: 20030813
  3. GEMZAR [Suspect]
     Indication: BLADDER CANCER
     Dosage: DAY 1 AND 8
     Route: 042
     Dates: start: 20030709, end: 20030820
  4. PENTASA [Concomitant]
  5. ATENOLOL [Concomitant]
  6. VICODIN [Concomitant]
  7. POTASSIUM + MAGNESIUM [Concomitant]

REACTIONS (3)
  - FUNGAL PERITONITIS [None]
  - MULTI-ORGAN FAILURE [None]
  - SEPSIS [None]
